FAERS Safety Report 20477606 (Version 2)
Quarter: 2022Q2

REPORT INFORMATION
  Report Type: Spontaneous
  Country: US (occurrence: US)
  Receive Date: 20220216
  Receipt Date: 20220628
  Transmission Date: 20220721
  Serious: Yes (Other)
  Sender: FDA-Public Use
  Company Number: US-GILEAD-2022-0569531

PATIENT
  Age: 56 Year
  Sex: Male
  Weight: 92.98 kg

DRUGS (10)
  1. TRUVADA [Suspect]
     Active Substance: EMTRICITABINE\TENOFOVIR DISOPROXIL FUMARATE
     Indication: HIV infection
     Dosage: UNK
     Route: 048
     Dates: start: 2014, end: 201611
  2. EPIVIR [Concomitant]
     Active Substance: LAMIVUDINE
  3. EPZICOM [Concomitant]
     Active Substance: ABACAVIR SULFATE\LAMIVUDINE
  4. KALETRA [Concomitant]
     Active Substance: LOPINAVIR\RITONAVIR
  5. NORVIR [Concomitant]
     Active Substance: RITONAVIR
  6. RETROVIR [Concomitant]
     Active Substance: ZIDOVUDINE
  7. TRIUMEQ [Concomitant]
     Active Substance: ABACAVIR SULFATE\DOLUTEGRAVIR SODIUM\LAMIVUDINE
  8. LISINOPRIL [Concomitant]
     Active Substance: LISINOPRIL
  9. VITAMINS [Concomitant]
     Active Substance: VITAMINS
  10. VITAMIN B COMPLEX [Concomitant]
     Active Substance: CYANOCOBALAMIN\DEXPANTHENOL\NIACINAMIDE\PYRIDOXINE HYDROCHLORIDE\RIBOFLAVIN 5^-PHOSPHATE SODIUM\THIA

REACTIONS (10)
  - Renal injury [Unknown]
  - Renal impairment [Unknown]
  - Chronic kidney disease [Not Recovered/Not Resolved]
  - Anhedonia [Not Recovered/Not Resolved]
  - Emotional distress [Not Recovered/Not Resolved]
  - Anxiety [Not Recovered/Not Resolved]
  - Pain [Not Recovered/Not Resolved]
  - Pollakiuria [Not Recovered/Not Resolved]
  - Depression [Unknown]
  - Blood creatinine increased [Unknown]

NARRATIVE: CASE EVENT DATE: 20161101
